FAERS Safety Report 6253569-9 (Version None)
Quarter: 2009Q3

REPORT INFORMATION
  Report Type: 
  Country: None (occurrence: None)
  Receive Date: 20090701
  Receipt Date: 20090617
  Transmission Date: 20100115
  Serious: Yes (Hospitalization)
  Sender: FDA-Public Use
  Company Number: US-ELI_LILLY_AND_COMPANY-US200906004346

PATIENT
  Sex: Male
  Weight: 106.12 kg

DRUGS (6)
  1. SOMATROPIN [Suspect]
     Indication: HYPOPITUITARISM
     Dosage: 0.7 IU, DAILY (1/D)
     Dates: end: 20090101
  2. LEVOXYL [Concomitant]
     Indication: HYPOTHYROIDISM
  3. TESTOSTERONE [Concomitant]
     Indication: HYPOGONADISM
  4. HYDROCORTISONE [Concomitant]
     Indication: ADRENAL INSUFFICIENCY
  5. DILTIAZEM [Concomitant]
     Indication: HYPERTENSION
  6. CLONAZEPAM [Concomitant]
     Indication: ANXIETY

REACTIONS (1)
  - CHOLELITHIASIS [None]
